FAERS Safety Report 4374785-7 (Version None)
Quarter: 2004Q2

REPORT INFORMATION
  Report Type: 
  Country: None (occurrence: None)
  Receive Date: 20040609
  Receipt Date: 20040604
  Transmission Date: 20050107
  Serious: Yes (Other)
  Sender: FDA-Public Use
  Company Number: US-BRISTOL-MYERS SQUIBB COMPANY-12606075

PATIENT
  Age: 61 Year
  Sex: Male
  Weight: 95 kg

DRUGS (2)
  1. ERBITUX [Suspect]
     Indication: COLON CANCER METASTATIC
     Route: 042
     Dates: start: 20040602, end: 20040602
  2. BENADRYL [Concomitant]
     Indication: PREMEDICATION
     Route: 042
     Dates: start: 20040602, end: 20040602

REACTIONS (3)
  - BODY TEMPERATURE INCREASED [None]
  - CHILLS [None]
  - HEART RATE ABNORMAL [None]
